FAERS Safety Report 4773375-1 (Version None)
Quarter: 2005Q3

REPORT INFORMATION
  Report Type: 
  Country: None (occurrence: None)
  Receive Date: 20050914
  Receipt Date: 20041101
  Transmission Date: 20060218
  Serious: Yes (Death, Hospitalization)
  Sender: FDA-Public Use
  Company Number: 163-20785-04110006

PATIENT
  Age: 71 Year
  Sex: Female

DRUGS (2)
  1. THALOMID [Suspect]
     Indication: BREAST CANCER
     Dosage: 50 MG, DAILY, ORAL
     Route: 048
     Dates: start: 20040904, end: 20040901
  2. TAMOXIFEN CITRATE [Concomitant]

REACTIONS (8)
  - AMNESIA [None]
  - DISEASE PROGRESSION [None]
  - DIZZINESS [None]
  - FATIGUE [None]
  - PERIPHERAL COLDNESS [None]
  - POVERTY OF SPEECH [None]
  - SEDATION [None]
  - TREMOR [None]
